FAERS Safety Report 5796008-4 (Version None)
Quarter: 2008Q2

REPORT INFORMATION
  Report Type: 
  Country: None (occurrence: None)
  Receive Date: 20080626
  Receipt Date: 20080611
  Transmission Date: 20081010
  Serious: Yes (Death)
  Sender: FDA-Public Use
  Company Number: 2008AL006825

PATIENT
  Age: 53 Year
  Sex: Female

DRUGS (1)
  1. DIGOXIN TABLETS                (AMIDE) [Suspect]
     Indication: CARDIAC DISORDER
     Dosage: PO
     Route: 048
     Dates: end: 20070101

REACTIONS (7)
  - ALTERED STATE OF CONSCIOUSNESS [None]
  - COLONOSCOPY ABNORMAL [None]
  - FAECES DISCOLOURED [None]
  - NAUSEA [None]
  - SEPTIC SHOCK [None]
  - URINARY TRACT INFECTION [None]
  - VOMITING [None]
